FAERS Safety Report 7795478-X (Version None)
Quarter: 2011Q4

REPORT INFORMATION
  Report Type: 
  Country: None (occurrence: None)
  Receive Date: 20111004
  Receipt Date: 20110930
  Transmission Date: 20120403
  Serious: Yes (Hospitalization)
  Sender: FDA-Public Use
  Company Number: US-MERCK-1107USA00018

PATIENT
  Age: 50 Year
  Sex: Female
  Weight: 65 kg

DRUGS (19)
  1. FOSAMAX [Suspect]
     Indication: OSTEOPOROSIS
     Route: 048
     Dates: start: 19970701, end: 20010406
  2. CENTRUM SILVER [Concomitant]
     Dosage: 1 DAILY
     Route: 065
     Dates: start: 19970101
  3. VITAMIN D (UNSPECIFIED) [Concomitant]
     Route: 065
     Dates: start: 19970101
  4. VIVACTIL [Concomitant]
     Route: 065
  5. ASPIRIN [Concomitant]
     Route: 065
     Dates: start: 20091101
  6. ALLEGRA [Concomitant]
     Route: 065
     Dates: start: 20090101
  7. FOSAMAX [Suspect]
     Route: 048
     Dates: start: 20010401, end: 20110122
  8. NEXIUM [Concomitant]
     Route: 065
  9. FOSAMAX [Suspect]
     Route: 048
     Dates: start: 20010401, end: 20110122
  10. FOSAMAX [Suspect]
     Indication: OSTEOPENIA
     Route: 048
     Dates: start: 19970701, end: 20010406
  11. HORMONES (UNSPECIFIED) [Concomitant]
     Route: 065
     Dates: start: 19930101, end: 20020101
  12. PROVERA [Concomitant]
     Route: 065
  13. TENORMIN [Concomitant]
     Route: 065
  14. SINGULAIR [Concomitant]
     Route: 048
     Dates: start: 20090101
  15. CALCIUM (UNSPECIFIED) AND VITAMIN D (UNSPECIFIED) [Concomitant]
     Route: 065
  16. CALCIUM (UNSPECIFIED) [Concomitant]
     Route: 065
     Dates: start: 19970101
  17. ESTRACE [Concomitant]
     Route: 065
  18. [THERAPY UNSPECIFIED] [Concomitant]
     Dosage: BLOOD PRESSURE MEDICATION
     Route: 065
  19. HYDROCHLOROTHIAZIDE [Concomitant]
     Route: 065
     Dates: start: 20101201

REACTIONS (35)
  - ANAEMIA [None]
  - HYPERLIPIDAEMIA [None]
  - THYROID NEOPLASM [None]
  - FOOT FRACTURE [None]
  - CONJUNCTIVITIS ALLERGIC [None]
  - DYSPEPSIA [None]
  - METRORRHAGIA [None]
  - HAND FRACTURE [None]
  - BLOOD CHOLESTEROL INCREASED [None]
  - BLEPHARITIS [None]
  - SLEEP APNOEA SYNDROME [None]
  - NEUROMA [None]
  - FUNGAL INFECTION [None]
  - ABDOMINAL PAIN UPPER [None]
  - RHINITIS [None]
  - PAIN IN JAW [None]
  - NAIL DISORDER [None]
  - TOOTH IMPACTED [None]
  - DRY EYE [None]
  - ACUTE SINUSITIS [None]
  - GASTRITIS [None]
  - METATARSUS PRIMUS VARUS [None]
  - VAGINAL HAEMORRHAGE [None]
  - MUSCLE SPASMS [None]
  - HYPERSOMNIA [None]
  - ECZEMA [None]
  - FEMUR FRACTURE [None]
  - CERVICAL DYSPLASIA [None]
  - TEMPOROMANDIBULAR JOINT SYNDROME [None]
  - SPLINTER [None]
  - EPISTAXIS [None]
  - HYPOTENSION [None]
  - COLONIC POLYP [None]
  - LIBIDO DECREASED [None]
  - FOOT DEFORMITY [None]
